FAERS Safety Report 18533834 (Version 1)
Quarter: 2020Q4

REPORT INFORMATION
  Report Type: Spontaneous
  Country: US (occurrence: US)
  Receive Date: 20201121
  Receipt Date: 20201121
  Transmission Date: 20210114
  Serious: Yes (Other)
  Sender: FDA-Public Use
  Company Number: None

PATIENT
  Age: 44 Year
  Sex: Female
  Weight: 74.25 kg

DRUGS (1)
  1. HYDROGEN PEROXIDE TOPICAL SOLUTION [Suspect]
     Active Substance: HYDROGEN PEROXIDE
     Indication: INFECTION PROPHYLAXIS
     Route: 061
     Dates: start: 20201121, end: 20201121

REACTIONS (3)
  - Abdominal distension [None]
  - Oedema [None]
  - Headache [None]

NARRATIVE: CASE EVENT DATE: 20201121
